FAERS Safety Report 9407598 (Version 1)
Quarter: 2013Q2

REPORT INFORMATION
  Report Type: Spontaneous
  Country: US (occurrence: None)
  Receive Date: 20130408
  Receipt Date: 20130408
  Transmission Date: 20140414
  Serious: Yes (Disabling, Other)
  Sender: FDA-Public Use
  Company Number: ACO_35214_2013

PATIENT
  Age: 52 Year
  Sex: Female
  Weight: 79.4 kg

DRUGS (6)
  1. AMPYRA (DALFAMPRIDINE) TABLET, 10MG [Suspect]
     Indication: GAIT DISTURBANCE
     Route: 048
     Dates: start: 2011
  2. REBIF (INTERFERON BETA-1A) [Suspect]
     Indication: PRODUCT USED FOR UNKNOWN INDICATION
  3. BACLOFEN (BACLOFEN) [Concomitant]
  4. WELLBUTRIN (BUPROPION HYDROCHLORIDE) [Concomitant]
  5. ADDERALL (AMFETAMINE ASPARTATE, AMFETAMINE SULFATE, DEXAMFETAMINE SACCHARATE, DEXAMFETAMINE SULFATE) [Concomitant]
  6. AVONEX (INTERFERON BETA-1A) [Concomitant]

REACTIONS (7)
  - Abasia [None]
  - Movement disorder [None]
  - Feeling abnormal [None]
  - Gait disturbance [None]
  - Accidental overdose [None]
  - Headache [None]
  - Drug dose omission [None]
